FAERS Safety Report 5617256-X (Version None)
Quarter: 2008Q1

REPORT INFORMATION
  Report Type: 
  Country: None (occurrence: None)
  Receive Date: 20080207
  Receipt Date: 20071109
  Transmission Date: 20080703
  Serious: Yes (Hospitalization, Other)
  Sender: FDA-Public Use
  Company Number: A0357648A

PATIENT
  Age: 20 Year
  Sex: Female

DRUGS (2)
  1. PAXIL [Suspect]
     Indication: DEPRESSION
     Dosage: 10MG PER DAY
     Route: 048
     Dates: start: 20020117, end: 20020122
  2. MAXALT [Suspect]
     Indication: MIGRAINE
     Dosage: 10MG FOUR TIMES PER DAY
     Dates: start: 20011217, end: 20020123

REACTIONS (9)
  - ASTHENIA [None]
  - BURNING SENSATION [None]
  - CLONUS [None]
  - DRUG INTERACTION [None]
  - DRY MOUTH [None]
  - FLUSHING [None]
  - HYPERREFLEXIA [None]
  - NAUSEA [None]
  - SEROTONIN SYNDROME [None]
